FAERS Safety Report 21408421 (Version 1)
Quarter: 2022Q4

REPORT INFORMATION
  Report Type: Spontaneous
  Country: NO (occurrence: NO)
  Receive Date: 20221004
  Receipt Date: 20221004
  Transmission Date: 20230113
  Serious: Yes (Other)
  Sender: FDA-Public Use
  Company Number: NO-BAYER-2022P015826

PATIENT
  Age: 22 Year
  Sex: Female

DRUGS (1)
  1. LEVONORGESTREL [Suspect]
     Active Substance: LEVONORGESTREL
     Dosage: UNK UNK, CONT
     Route: 015

REACTIONS (4)
  - Coeliac disease [None]
  - Lipoedema [None]
  - Weight increased [None]
  - Weight loss poor [None]

NARRATIVE: CASE EVENT DATE: 20120101
